FAERS Safety Report 9521447 (Version 1)
Quarter: 2013Q3

REPORT INFORMATION
  Report Type: Spontaneous
  Country: FR (occurrence: FR)
  Receive Date: 20130913
  Receipt Date: 20130913
  Transmission Date: 20140515
  Serious: Yes (Hospitalization)
  Sender: FDA-Public Use
  Company Number: FR-PFIZER INC-2013263182

PATIENT
  Age: 87 Year
  Sex: Male

DRUGS (9)
  1. HYTACAND [Suspect]
     Indication: HYPERTENSION
     Dosage: 1 DF, UNK
     Route: 048
     Dates: end: 20120803
  2. DAFALGAN [Concomitant]
     Dosage: UNK
  3. INEXIUM [Concomitant]
     Dosage: UNK
  4. TADENAN [Concomitant]
     Dosage: UNK
  5. XATRAL [Concomitant]
     Dosage: UNK
  6. KARDEGIC [Concomitant]
     Dosage: UNK
  7. AMIODARONE HCL [Suspect]
     Indication: ATRIAL FIBRILLATION
     Dosage: 200 MG, DAILY
     Route: 048
     Dates: end: 20120803
  8. LASILIX FAIBLE [Suspect]
     Dosage: 20 MG, DAILY
     Route: 048
     Dates: end: 20120803
  9. DIGOXINE NATIVELLE [Suspect]
     Indication: ATRIAL FIBRILLATION
     Dosage: 1 DF, UNK
     Route: 048
     Dates: start: 201204, end: 20120803

REACTIONS (5)
  - Cardioactive drug level increased [Recovered/Resolved]
  - Syncope [Recovered/Resolved]
  - Loss of consciousness [Recovered/Resolved]
  - Sinus bradycardia [Recovered/Resolved]
  - Blood creatinine increased [Recovered/Resolved]
